FAERS Safety Report 5288299-3 (Version None)
Quarter: 2007Q1

REPORT INFORMATION
  Report Type: 
  Country: None (occurrence: None)
  Receive Date: 20070330
  Receipt Date: 20070315
  Transmission Date: 20070707
  Serious: Yes (Death)
  Sender: FDA-Public Use
  Company Number: 032-101

PATIENT
  Sex: Female

DRUGS (3)
  1. TEVETEN [Suspect]
     Dosage: 600 MG DAILY PO; A FEW WEEKS
     Route: 048
  2. METFORMIN HCL [Concomitant]
  3. BENDROFLUAZIDE [Concomitant]

REACTIONS (4)
  - CAUDA EQUINA SYNDROME [None]
  - DRUG EXPOSURE DURING PREGNANCY [None]
  - HYPOPERFUSION [None]
  - INTRA-UTERINE DEATH [None]
